FAERS Safety Report 8006009-3 (Version None)
Quarter: 2011Q4

REPORT INFORMATION
  Report Type: 
  Country: None (occurrence: None)
  Receive Date: 20111226
  Receipt Date: 20111219
  Transmission Date: 20120403
  Serious: Yes (Other)
  Sender: FDA-Public Use
  Company Number: ES-ACCORD-011689

PATIENT
  Age: 43 Year
  Sex: Male

DRUGS (7)
  1. TACROLIMUS [Suspect]
  2. MYCOPHENOLATE MOFETIL [Concomitant]
  3. SULFAMETHOXAZOLE AND TRIMETHOPRIM [Concomitant]
  4. TENOFOVIR [Concomitant]
     Indication: ANTIVIRAL TREATMENT
  5. EMTRICITABINE [Concomitant]
     Indication: ANTIVIRAL TREATMENT
  6. FOSAMPRENAVIR [Concomitant]
     Indication: ANTIVIRAL TREATMENT
  7. RITONAVIR [Concomitant]
     Indication: ANTIVIRAL TREATMENT

REACTIONS (1)
  - RENAL TUBULAR ACIDOSIS [None]
